FAERS Safety Report 10696969 (Version 1)
Quarter: 2015Q1

REPORT INFORMATION
  Report Type: Spontaneous
  Country: US (occurrence: None)
  Receive Date: 20150107
  Receipt Date: 20150107
  Transmission Date: 20150721
  Serious: Yes (Life-Threatening)
  Sender: FDA-Public Use
  Company Number: None

PATIENT
  Age: 79 Year
  Sex: Male
  Weight: 93.44 kg

DRUGS (2)
  1. ANDROGEL [Suspect]
     Active Substance: TESTOSTERONE
     Indication: BLOOD TESTOSTERONE DECREASED
     Dosage: 2 PUMPS, ONCE EVERY MORNING, ON THE SKIN
     Route: 061
     Dates: start: 20141009, end: 20141105
  2. ANDROGEL [Suspect]
     Active Substance: TESTOSTERONE
     Indication: MUSCULAR WEAKNESS
     Dosage: 2 PUMPS, ONCE EVERY MORNING, ON THE SKIN
     Route: 061
     Dates: start: 20141009, end: 20141105

REACTIONS (4)
  - Palpitations [None]
  - Pruritus [None]
  - Gynaecomastia [None]
  - Nocturia [None]

NARRATIVE: CASE EVENT DATE: 20141105
